FAERS Safety Report 7374550-2 (Version None)
Quarter: 2011Q1

REPORT INFORMATION
  Report Type: 
  Country: None (occurrence: None)
  Receive Date: 20110325
  Receipt Date: 20100310
  Transmission Date: 20110831
  Serious: No
  Sender: FDA-Public Use
  Company Number: US-MYLANLABS-2010S1004217

PATIENT
  Age: 68 Year
  Sex: Male

DRUGS (2)
  1. HYDROCODONE BITARTRATE AND ACETAMINOPHEN [Concomitant]
     Indication: BREAKTHROUGH PAIN
     Dosage: 10MG/500MG FOUR TIMES A DAY AS NEEDED.
     Dates: start: 20030101
  2. FENTANYL-100 [Suspect]
     Indication: BACK PAIN
     Dosage: Q3D
     Route: 062
     Dates: start: 20100224

REACTIONS (3)
  - EXPIRED DRUG ADMINISTERED [None]
  - DRUG EFFECT DECREASED [None]
  - BACK PAIN [None]
